FAERS Safety Report 9995569 (Version 1)
Quarter: 2014Q1

REPORT INFORMATION
  Report Type: Spontaneous
  Country: US (occurrence: US)
  Receive Date: 20140311
  Receipt Date: 20140311
  Transmission Date: 20141002
  Serious: No
  Sender: FDA-Public Use
  Company Number: US-MYLANLABS-2013S1028951

PATIENT
  Age: 69 Year
  Sex: Male
  Weight: 71.22 kg

DRUGS (1)
  1. PIOGLITAZONE TABLETS USP [Suspect]
     Indication: DIABETES MELLITUS
     Route: 048
     Dates: start: 20131220

REACTIONS (1)
  - Dizziness [Not Recovered/Not Resolved]
